FAERS Safety Report 25463562 (Version 1)
Quarter: 2025Q2

REPORT INFORMATION
  Report Type: Spontaneous
  Country: CN (occurrence: CN)
  Receive Date: 20250620
  Receipt Date: 20250620
  Transmission Date: 20250716
  Serious: Yes (Other)
  Sender: ELI LILLY AND COMPANY
  Company Number: CN-CHEPLA-2025007276

PATIENT
  Age: 65 Year
  Sex: Female

DRUGS (3)
  1. GEMCITABINE HYDROCHLORIDE [Suspect]
     Active Substance: GEMCITABINE HYDROCHLORIDE
     Indication: Squamous cell carcinoma
     Route: 065
     Dates: start: 20230403
  2. GEMCITABINE HYDROCHLORIDE [Suspect]
     Active Substance: GEMCITABINE HYDROCHLORIDE
     Route: 065
     Dates: start: 20230411
  3. CISPLATIN [Suspect]
     Active Substance: CISPLATIN
     Indication: Squamous cell carcinoma
     Route: 065
     Dates: start: 20230411

REACTIONS (5)
  - Squamous cell carcinoma [Unknown]
  - Metastasis [Unknown]
  - White blood cell count decreased [Unknown]
  - Hyperkeratosis [Unknown]
  - Pain [Unknown]
